FAERS Safety Report 5921596-4 (Version None)
Quarter: 2008Q4

REPORT INFORMATION
  Report Type: 
  Country: None (occurrence: None)
  Receive Date: 20081016
  Receipt Date: 20081016
  Transmission Date: 20090506
  Serious: No
  Sender: FDA-Public Use
  Company Number: None

PATIENT
  Age: 60 Year
  Sex: Male
  Weight: 82 kg

DRUGS (9)
  1. ZOSYN [Suspect]
     Indication: SEPTIC SHOCK
     Dosage: 3.375 G X 1  ; 2.25 G Q 8 HR
     Dates: start: 20080918, end: 20080922
  2. ZOSYN [Suspect]
     Indication: SEPTIC SHOCK
     Dosage: 3.375 G X 1  ; 2.25 G Q 8 HR
     Dates: start: 20080918
  3. VANCOMYCIN HYDROCHLORIDE [Concomitant]
  4. GENTAMICIN [Concomitant]
  5. PHOSLO [Concomitant]
  6. DOPAMINE HCL [Concomitant]
  7. NOREPINEPHRINE [Concomitant]
  8. PANTOPRAZOLE SODIUM [Concomitant]
  9. METHADONE HCL [Concomitant]

REACTIONS (4)
  - ALANINE AMINOTRANSFERASE INCREASED [None]
  - ASPARTATE AMINOTRANSFERASE INCREASED [None]
  - BLOOD BILIRUBIN INCREASED [None]
  - HEPATIC FUNCTION ABNORMAL [None]
